FAERS Safety Report 14917767 (Version 3)
Quarter: 2018Q3

REPORT INFORMATION
  Report Type: Report from Study
  Country: ES (occurrence: ES)
  Receive Date: 20180521
  Receipt Date: 20180920
  Transmission Date: 20181010
  Serious: Yes (Hospitalization, Other)
  Sender: FDA-Public Use
  Company Number: ES-TEVA-2018-ES-893370

PATIENT
  Age: 69 Year
  Sex: Male

DRUGS (6)
  1. SERTRALINA (2537A) [Interacting]
     Active Substance: SERTRALINE HYDROCHLORIDE
     Dosage: 200 MILLIGRAM DAILY;
     Route: 048
     Dates: start: 201408, end: 20160923
  2. HIDROCLOROTIAZIDA (1343A) [Interacting]
     Active Substance: HYDROCHLOROTHIAZIDE
     Indication: HYPERTENSION
     Dosage: 50 MILLIGRAM DAILY;
     Route: 048
     Dates: start: 201310, end: 20160923
  3. PROVISACOR 20 MG COMPRIMIDOS RECUBIERTOS CON PELICULA , 28 COMPRIMIDOS [Concomitant]
     Indication: HYPERLIPIDAEMIA
     Dosage: 20 MILLIGRAM DAILY;
     Route: 048
     Dates: start: 2016, end: 20160923
  4. FUROSEMIDA (1615A) [Interacting]
     Active Substance: FUROSEMIDE
     Dosage: 40 MILLIGRAM DAILY;
     Route: 048
     Dates: start: 201608, end: 20160923
  5. ELIQUIS 5 MG COMPRIMIDOS RECUBIERTOS CON PELICULA 28 COMPRIMIDOS [Concomitant]
     Dosage: 5 MILLIGRAM DAILY;
     Route: 048
     Dates: start: 2016, end: 20160923
  6. ENALAPRIL MALEATO (2142MA) [Suspect]
     Active Substance: ENALAPRIL MALEATE
     Indication: HYPERTENSION
     Dosage: 5 MILLIGRAM DAILY;
     Route: 048
     Dates: start: 2009

REACTIONS (2)
  - Drug interaction [Unknown]
  - Hyponatraemia [Recovered/Resolved]

NARRATIVE: CASE EVENT DATE: 20160923
